FAERS Safety Report 5288128-8 (Version None)
Quarter: 2007Q2

REPORT INFORMATION
  Report Type: 
  Country: None (occurrence: None)
  Receive Date: 20070405
  Receipt Date: 20070327
  Transmission Date: 20071010
  Serious: Yes (Hospitalization)
  Sender: FDA-Public Use
  Company Number: PHHO2007TR04446

PATIENT
  Age: 40 Year
  Sex: Male
  Weight: 66 kg

DRUGS (2)
  1. ERL 080A ERL+TAB [Suspect]
     Indication: RENAL TRANSPLANT
     Dosage: 1440 MG /DAY
     Route: 048
     Dates: start: 20070228
  2. SANDIMMUNE [Suspect]
     Indication: RENAL TRANSPLANT
     Dosage: 175 MG /DAILY
     Route: 048
     Dates: start: 20070228

REACTIONS (9)
  - BLOOD CREATININE INCREASED [None]
  - CATHETER RELATED INFECTION [None]
  - CULTURE THROAT POSITIVE [None]
  - ENTEROBACTER INFECTION [None]
  - ESCHERICHIA INFECTION [None]
  - ESCHERICHIA URINARY TRACT INFECTION [None]
  - GRAFT DYSFUNCTION [None]
  - IMMUNOSUPPRESSION [None]
  - PYREXIA [None]
